FAERS Safety Report 5543382-X (Version None)
Quarter: 2007Q4

REPORT INFORMATION
  Report Type: 
  Country: None (occurrence: None)
  Receive Date: 20071210
  Receipt Date: 20061103
  Transmission Date: 20080405
  Serious: No
  Sender: FDA-Public Use
  Company Number: US-AMGEN-KDL188200

PATIENT
  Sex: Male

DRUGS (4)
  1. ENBREL [Suspect]
     Indication: RHEUMATOID ARTHRITIS
     Route: 058
     Dates: start: 20000701, end: 20050217
  2. PREDNISONE [Concomitant]
  3. AZULFIDINE EN-TABS [Concomitant]
  4. DARVOCET [Concomitant]

REACTIONS (2)
  - PAIN [None]
  - THERAPEUTIC RESPONSE DECREASED [None]
